FAERS Safety Report 5907898-6 (Version None)
Quarter: 2008Q4

REPORT INFORMATION
  Report Type: 
  Country: None (occurrence: None)
  Receive Date: 20081003
  Receipt Date: 20080921
  Transmission Date: 20090506
  Serious: Yes (Other)
  Sender: FDA-Public Use
  Company Number: US-PFIZER INC-2008060300

PATIENT
  Sex: Male
  Weight: 96.2 kg

DRUGS (6)
  1. CHANTIX [Suspect]
     Indication: SMOKING CESSATION THERAPY
     Route: 048
     Dates: start: 20080701, end: 20080917
  2. ATENOLOL [Concomitant]
  3. VALIUM [Concomitant]
  4. HYDROCODONE BITARTRATE [Concomitant]
  5. SOMA [Concomitant]
  6. DARVOCET [Concomitant]

REACTIONS (3)
  - HOMICIDAL IDEATION [None]
  - INTERVERTEBRAL DISC OPERATION [None]
  - SUICIDAL IDEATION [None]
